FAERS Safety Report 8547652 (Version 3)
Quarter: 2013Q4

REPORT INFORMATION
  Report Type: Spontaneous
  Country: JP (occurrence: JP)
  Receive Date: 20120504
  Receipt Date: 20131106
  Transmission Date: 20140711
  Serious: Yes (Other)
  Sender: FDA-Public Use
  Company Number: JP-009507513-1205USA00050

PATIENT
  Age: 72 Year
  Sex: Male

DRUGS (10)
  1. JANUVIA TABLETS 50MG [Suspect]
     Indication: DIABETES MELLITUS
     Dosage: 50 MG, QD
     Route: 048
     Dates: start: 20110117, end: 201204
  2. GLIMICRON [Concomitant]
     Indication: TYPE 2 DIABETES MELLITUS
     Dosage: 1 MG, QD
     Route: 048
     Dates: start: 200704
  3. GLUCOBAY [Concomitant]
     Indication: DIABETES MELLITUS
     Dosage: 100 G, TID
     Route: 048
  4. METGLUCO [Concomitant]
     Indication: DIABETES MELLITUS
     Dosage: 750 MG, QD
     Route: 048
  5. LIVALO [Concomitant]
     Indication: DYSLIPIDAEMIA
     Dosage: 1 MG, QD
     Route: 048
     Dates: start: 2009
  6. MICARDIS [Concomitant]
     Indication: HYPERTENSION
     Dosage: 40 MG, UNK
     Route: 048
     Dates: start: 2009
  7. KINEDAK [Concomitant]
     Indication: DIABETIC NEUROPATHY
     Dosage: DOSAGE IS UNCERTAIN DURING A DAY
     Route: 048
  8. BAYASPIRIN [Concomitant]
     Dosage: 100 MG, QD
     Route: 048
     Dates: start: 2009
  9. FERROMIA [Concomitant]
     Indication: ANAEMIA
     Dosage: DOSAGE IS UNCERTAIN DURING A DAY
     Route: 048
     Dates: start: 201203
  10. PURSENNID (SENNOSIDES) [Concomitant]
     Dosage: DOSAGE IS UNCERTAIN DURING A DAY
     Route: 048

REACTIONS (1)
  - Rheumatic disorder [Unknown]
